FAERS Safety Report 12486201 (Version 1)
Quarter: 2016Q2

REPORT INFORMATION
  Report Type: Spontaneous
  Country: US (occurrence: US)
  Receive Date: 20160621
  Receipt Date: 20160621
  Transmission Date: 20160815
  Serious: Yes (Other)
  Sender: FDA-Public Use
  Company Number: US-PRESTIGE BRANDS -1054136

PATIENT
  Age: 29 Year
  Sex: Female

DRUGS (1)
  1. DERMAREST PSORIASIS MEDICATED SKIN TREATMENT [Suspect]
     Active Substance: SALICYLIC ACID
     Indication: PSORIASIS
     Route: 061
     Dates: start: 20160514, end: 20160527

REACTIONS (6)
  - Dry skin [Not Recovered/Not Resolved]
  - Dermatitis [Not Recovered/Not Resolved]
  - Skin exfoliation [None]
  - Musculoskeletal stiffness [Not Recovered/Not Resolved]
  - Burns third degree [Not Recovered/Not Resolved]
  - Skin ulcer [None]
